FAERS Safety Report 6138038-9 (Version None)
Quarter: 2009Q1

REPORT INFORMATION
  Report Type: 
  Country: None (occurrence: None)
  Receive Date: 20090327
  Receipt Date: 20090327
  Transmission Date: 20090719
  Serious: Yes (Disabling)
  Sender: FDA-Public Use
  Company Number: None

PATIENT
  Sex: Male
  Weight: 92.9874 kg

DRUGS (2)
  1. ZYPREXA [Suspect]
     Indication: BACK PAIN
     Dosage: 20MG,5MG DAILY
     Dates: start: 19980501
  2. ZYPREXA [Suspect]
     Indication: OBSESSIVE-COMPULSIVE DISORDER
     Dosage: 20MG,5MG DAILY
     Dates: start: 19980501

REACTIONS (1)
  - INSOMNIA [None]
